FAERS Safety Report 14896849 (Version 3)
Quarter: 2018Q2

REPORT INFORMATION
  Report Type: Spontaneous
  Country: US (occurrence: US)
  Receive Date: 20180515
  Receipt Date: 20180614
  Transmission Date: 20180711
  Serious: No
  Sender: FDA-Public Use
  Company Number: US-MERZ NORTH AMERICA, INC.-18MRZ-00241

PATIENT
  Sex: Female

DRUGS (3)
  1. STERILE NORMAL SALINE [Concomitant]
  2. ASCLERA [Suspect]
     Active Substance: POLIDOCANOL
     Indication: UNINTENTIONAL USE FOR UNAPPROVED INDICATION
     Dosage: UNKNOWN DOSE
     Route: 065
     Dates: start: 20180507, end: 20180507
  3. BOTOX [Suspect]
     Active Substance: ONABOTULINUMTOXINA
     Indication: SKIN COSMETIC PROCEDURE

REACTIONS (7)
  - Tenderness [Not Recovered/Not Resolved]
  - Burning sensation [Recovered/Resolved]
  - Hypoaesthesia [Not Recovered/Not Resolved]
  - Swelling [Recovered/Resolved]
  - Injection site pain [Recovered/Resolved]
  - Therapeutic response decreased [Unknown]
  - Unintentional use for unapproved indication [Recovered/Resolved]

NARRATIVE: CASE EVENT DATE: 20180507
